FAERS Safety Report 8932002 (Version 1)
Quarter: 2012Q4

REPORT INFORMATION
  Report Type: 
  Country: DE (occurrence: DE)
  Receive Date: 20121128
  Receipt Date: 20121128
  Transmission Date: 20130627
  Serious: Yes (Other)
  Sender: FDA-Public Use
  Company Number: DE-PFIZER INC-2012292294

PATIENT
  Age: 72 Year
  Sex: Male

DRUGS (1)
  1. REVATIO [Suspect]
     Indication: PULMONARY ARTERIAL HYPERTENSION
     Dosage: 20 mg, 3x/day

REACTIONS (2)
  - Pulmonary hypertension [Unknown]
  - Malabsorption [Unknown]
